FAERS Safety Report 14676347 (Version 1)
Quarter: 2018Q1

REPORT INFORMATION
  Report Type: Spontaneous
  Country: US (occurrence: US)
  Receive Date: 20180323
  Receipt Date: 20180323
  Transmission Date: 20180509
  Serious: Yes (Other)
  Sender: FDA-Public Use
  Company Number: None

PATIENT
  Age: 64 Year
  Sex: Female
  Weight: 62.14 kg

DRUGS (6)
  1. VITAMIN D3 [Concomitant]
     Active Substance: CHOLECALCIFEROL
  2. MAGNESIUM [Concomitant]
     Active Substance: MAGNESIUM
  3. CALCIUM PLUS MINERALS [Concomitant]
  4. UDO^S OIL 3.6.9 BLEND [Concomitant]
  5. ATORVASTATIN [Concomitant]
     Active Substance: ATORVASTATIN
  6. GAVILYTE G [Suspect]
     Active Substance: POLYETHYLENE GLYCOL 3350\POTASSIUM CHLORIDE\SODIUM BICARBONATE\SODIUM CHLORIDE\SODIUM SULFATE ANHYDROUS
     Indication: BOWEL PREPARATION
     Dosage: STRENGTH - 125 MMOL/L SODIUM 10 MMOL/L POTASSIUM 40 MMOL/L SULFATE?20 MMOL/L BICARBONATE 35 MMOL/L CHLORIDE DOSE - 1/2 GALLON FREQUENCY (8) 8OZ GLASSES STARTING 6PM EVERY 15 MIN.
     Route: 048
     Dates: start: 20180305, end: 20180305

REACTIONS (5)
  - Headache [None]
  - Chills [None]
  - Heart rate increased [None]
  - Tremor [None]
  - Blood pressure increased [None]

NARRATIVE: CASE EVENT DATE: 20180306
